FAERS Safety Report 17171247 (Version 1)
Quarter: 2019Q4

REPORT INFORMATION
  Report Type: Spontaneous
  Country: US (occurrence: US)
  Receive Date: 20191218
  Receipt Date: 20191218
  Transmission Date: 20200122
  Serious: No
  Sender: FDA-Public Use
  Company Number: US-SUPERNUS PHARMACEUTICALS, INC.-2019SUP00290

PATIENT
  Sex: Female

DRUGS (6)
  1. NUEDEXTA [Suspect]
     Active Substance: DEXTROMETHORPHAN HYDROBROMIDE\QUINIDINE SULFATE
     Indication: AFFECT LABILITY
     Dosage: 1 CAPSULE, 1X/DAY AT BEDTIME
  2. CAMBIA [Concomitant]
     Active Substance: DICLOFENAC POTASSIUM
  3. NUEDEXTA [Suspect]
     Active Substance: DEXTROMETHORPHAN HYDROBROMIDE\QUINIDINE SULFATE
     Dosage: 1 CAPSULE, 2X/DAY
  4. TROKENDI XR [Suspect]
     Active Substance: TOPIRAMATE
     Indication: MIGRAINE
     Dosage: 25 MG ONCE EVERY 3 TO 4 DAYS
  5. MEDROL [Concomitant]
     Active Substance: METHYLPREDNISOLONE
  6. TROKENDI XR [Suspect]
     Active Substance: TOPIRAMATE
     Indication: INJURY

REACTIONS (5)
  - Inner ear disorder [Not Recovered/Not Resolved]
  - Chest pain [Unknown]
  - Somnolence [Unknown]
  - Migraine [Unknown]
  - Dizziness [Not Recovered/Not Resolved]
